FAERS Safety Report 8545127-8 (Version None)
Quarter: 2012Q3

REPORT INFORMATION
  Report Type: 
  Country: None (occurrence: None)
  Receive Date: 20120727
  Receipt Date: 20120723
  Transmission Date: 20120928
  Serious: Yes (Other)
  Sender: FDA-Public Use
  Company Number: US-ABBOTT-12P-163-0959157-00

PATIENT
  Sex: Female
  Weight: 110.32 kg

DRUGS (3)
  1. SYNTHROID [Suspect]
     Indication: THYROIDECTOMY
     Dates: start: 19710101, end: 20120717
  2. UNKNOWN MEDICATIONS [Concomitant]
  3. SYNTHROID [Suspect]
     Dates: start: 20120717

REACTIONS (10)
  - HOT FLUSH [None]
  - BLOOD THYROID STIMULATING HORMONE DECREASED [None]
  - POLYCYSTIC OVARIES [None]
  - THYROXINE INCREASED [None]
  - UTERINE ENLARGEMENT [None]
  - DIZZINESS [None]
  - ENDOMETRIOSIS [None]
  - THINKING ABNORMAL [None]
  - TEMPERATURE INTOLERANCE [None]
  - ASTHENIA [None]
